FAERS Safety Report 6928714-X (Version None)
Quarter: 2010Q3

REPORT INFORMATION
  Report Type: 
  Country: None (occurrence: None)
  Receive Date: 20100817
  Receipt Date: 20100809
  Transmission Date: 20110219
  Serious: Yes (Hospitalization)
  Sender: FDA-Public Use
  Company Number: B0667305A

PATIENT
  Sex: Female

DRUGS (7)
  1. SERETIDE [Suspect]
     Indication: ASTHMA
     Dosage: 1000MCG PER DAY
     Route: 055
     Dates: start: 20090328, end: 20100724
  2. BIOFERMIN R [Concomitant]
     Indication: UPPER RESPIRATORY TRACT INFLAMMATION
     Dosage: 18MG PER DAY
     Route: 048
     Dates: start: 20100508, end: 20100512
  3. UNKNOWN DRUG [Concomitant]
     Indication: UPPER RESPIRATORY TRACT INFLAMMATION
     Dosage: 600MG PER DAY
     Route: 048
     Dates: start: 20100508, end: 20100512
  4. FLOMOX [Concomitant]
     Indication: UPPER RESPIRATORY TRACT INFLAMMATION
     Dosage: 300MG PER DAY
     Route: 048
     Dates: start: 20100403, end: 20100409
  5. LOXONIN [Concomitant]
     Indication: UPPER RESPIRATORY TRACT INFLAMMATION
     Dosage: 180MG PER DAY
     Route: 048
     Dates: start: 20100403, end: 20100409
  6. GASMOTIN [Concomitant]
     Indication: UPPER RESPIRATORY TRACT INFLAMMATION
     Dosage: 15MG PER DAY
     Route: 048
     Dates: start: 20100305, end: 20100318
  7. OZEX [Concomitant]
     Indication: UPPER RESPIRATORY TRACT INFLAMMATION
     Dosage: 300MG PER DAY
     Route: 048
     Dates: start: 20100305, end: 20100311

REACTIONS (1)
  - CYSTITIS INTERSTITIAL [None]
